FAERS Safety Report 12982335 (Version 1)
Quarter: 2016Q4

REPORT INFORMATION
  Report Type: Spontaneous
  Country: DE (occurrence: DE)
  Receive Date: 20161129
  Receipt Date: 20161129
  Transmission Date: 20170207
  Serious: Yes (Hospitalization)
  Sender: FDA-Public Use
  Company Number: PHHY2016DE161631

PATIENT
  Age: 83 Year
  Sex: Female

DRUGS (1)
  1. SANDOSTATIN LAR DEPOT [Suspect]
     Active Substance: OCTREOTIDE ACETATE
     Indication: NEUROENDOCRINE TUMOUR
     Dosage: 20 MG, UNK
     Route: 065
     Dates: start: 20160908

REACTIONS (3)
  - Skin reaction [Unknown]
  - Herpes zoster [Recovering/Resolving]
  - Rash generalised [Unknown]

NARRATIVE: CASE EVENT DATE: 2016
